FAERS Safety Report 10612988 (Version 1)
Quarter: 2014Q4

REPORT INFORMATION
  Report Type: Spontaneous
  Country: FR (occurrence: FR)
  Receive Date: 20141127
  Receipt Date: 20141127
  Transmission Date: 20150529
  Serious: Yes (Other)
  Sender: FDA-Public Use
  Company Number: PHHY2014FR152882

PATIENT
  Age: 45 Year
  Sex: Male
  Weight: 86 kg

DRUGS (10)
  1. ZELITREX [Concomitant]
     Active Substance: VALACYCLOVIR HYDROCHLORIDE
     Indication: PROPHYLAXIS
     Dosage: UNK
     Route: 065
     Dates: start: 201305
  2. FOLINIC ACID [Concomitant]
     Active Substance: LEUCOVORIN
     Indication: PROPHYLAXIS
     Dosage: ) 3 TIMES DAILY FOR 15 DAYS AT TIME OF
     Route: 065
  3. TAVANIC [Concomitant]
     Active Substance: LEVOFLOXACIN
     Indication: PRODUCT USED FOR UNKNOWN INDICATION
     Dosage: UNK
     Route: 065
  4. NEORAL [Suspect]
     Active Substance: CYCLOSPORINE
     Dosage: 225 MG, BID
     Route: 065
     Dates: start: 20130723
  5. NEORAL [Suspect]
     Active Substance: CYCLOSPORINE
     Dosage: 125 MG IN THE MORNING AND 100MG IN THE EVENING
     Route: 065
  6. ATGAM [Suspect]
     Active Substance: EQUINE THYMOCYTE IMMUNE GLOBULIN
     Indication: BONE MARROW FAILURE
     Dosage: 40 MG/KG, DAILY
     Route: 042
     Dates: start: 20130517, end: 20130520
  7. BACTRIM [Concomitant]
     Active Substance: SULFAMETHOXAZOLE\TRIMETHOPRIM
     Indication: PROPHYLAXIS
     Dosage: UNK
     Route: 065
     Dates: start: 201305
  8. NEORAL [Suspect]
     Active Substance: CYCLOSPORINE
     Indication: APLASTIC ANAEMIA
     Dosage: 250 MG, BID
     Route: 048
     Dates: start: 20130517, end: 20130722
  9. POLARAMINE [Concomitant]
     Active Substance: DEXCHLORPHENIRAMINE MALEATE
     Indication: PREMEDICATION
     Dosage: UNK
     Route: 065
  10. SOLU-MEDROL [Concomitant]
     Active Substance: METHYLPREDNISOLONE SODIUM SUCCINATE
     Indication: PREMEDICATION
     Dosage: 20 MG, DAILY
     Route: 065

REACTIONS (18)
  - Reticulocyte count increased [Unknown]
  - Hypertension [Unknown]
  - Myopia [Unknown]
  - Purpura [Recovered/Resolved]
  - Infusion site reaction [Unknown]
  - Rash pruritic [Unknown]
  - Gastrointestinal disorder [Unknown]
  - Chills [Recovered/Resolved]
  - Renal impairment [Unknown]
  - Hyperuricaemia [Unknown]
  - Visual acuity reduced [Unknown]
  - Chest pain [Unknown]
  - Blood alkaline phosphatase increased [Unknown]
  - Diabetes mellitus [Unknown]
  - Vision blurred [Unknown]
  - Immunosuppressant drug level increased [Unknown]
  - Muscle spasms [Unknown]
  - Oedema peripheral [Unknown]

NARRATIVE: CASE EVENT DATE: 20130517
